FAERS Safety Report 24557514 (Version 1)
Quarter: 2024Q4

REPORT INFORMATION
  Report Type: Spontaneous
  Country: BR (occurrence: BR)
  Receive Date: 20241028
  Receipt Date: 20241028
  Transmission Date: 20250114
  Serious: Yes (Other)
  Sender: NOVO NORDISK
  Company Number: BR-NOVOPROD-1302830

PATIENT
  Sex: Female

DRUGS (4)
  1. OZEMPIC [Suspect]
     Active Substance: SEMAGLUTIDE
     Indication: Product used for unknown indication
     Dosage: UNK ( STARTED WITH DAILY DOSE)
     Dates: start: 202407
  2. OZEMPIC [Suspect]
     Active Substance: SEMAGLUTIDE
     Dosage: UNK (APPLICATIONS OF 18 (EIGHTEEN) CLICKS)
  3. OZEMPIC [Suspect]
     Active Substance: SEMAGLUTIDE
     Dosage: UNK (USED 5 CLICKS)
  4. OZEMPIC [Suspect]
     Active Substance: SEMAGLUTIDE
     Dosage: UNK (SWITCHED TO WEEKLY USE)

REACTIONS (5)
  - Mammoplasty [Recovered/Resolved]
  - Injection site discharge [Not Recovered/Not Resolved]
  - Drug ineffective [Not Recovered/Not Resolved]
  - Off label use [Recovered/Resolved]
  - Wrong technique in product usage process [Not Recovered/Not Resolved]

NARRATIVE: CASE EVENT DATE: 20240701
